FAERS Safety Report 19245340 (Version 1)
Quarter: 2021Q2

REPORT INFORMATION
  Report Type: Spontaneous
  Country: IT (occurrence: IT)
  Receive Date: 20210512
  Receipt Date: 20210512
  Transmission Date: 20210717
  Serious: Yes (Hospitalization, Other)
  Sender: FDA-Public Use
  Company Number: IT-AUROBINDO-AUR-APL-2021-019063

PATIENT
  Age: 25 Year
  Sex: Female

DRUGS (5)
  1. IBUPROFEN. [Suspect]
     Active Substance: IBUPROFEN
     Indication: SKIN LESION
     Dosage: 1200 MILLIGRAM, ONCE A DAY (600 MILLIGRAM, BID)
     Route: 065
  2. ADALIMUMAB [Concomitant]
     Active Substance: ADALIMUMAB
     Indication: PSORIATIC ARTHROPATHY
     Dosage: 40 MILLIGRAM, 21 DAY, FOR 10 YEARS
     Route: 065
  3. PREDNISONE. [Suspect]
     Active Substance: PREDNISONE
     Dosage: 15 MILLIGRAM, ONCE A DAY
     Route: 065
  4. PREDNISONE. [Suspect]
     Active Substance: PREDNISONE
     Indication: SKIN LESION
     Dosage: 50 MILLIGRAM, ONCE A DAY (2 WEEKS A SCALAR)
     Route: 065
  5. PREDNISONE. [Suspect]
     Active Substance: PREDNISONE
     Dosage: 2.5 MILLIGRAM, 5 DAY
     Route: 065

REACTIONS (10)
  - Neuralgia [Recovering/Resolving]
  - Dysaesthesia [Unknown]
  - Polyneuropathy [Unknown]
  - Oedema peripheral [Unknown]
  - Pain [Unknown]
  - Arthralgia [Recovered/Resolved]
  - Haematuria [Unknown]
  - Proteinuria [Recovering/Resolving]
  - Muscular weakness [Unknown]
  - Purpura [Recovered/Resolved]
